FAERS Safety Report 5058370-X (Version None)
Quarter: 2006Q2

REPORT INFORMATION
  Report Type: 
  Country: None (occurrence: None)
  Receive Date: 20060626
  Receipt Date: 20060306
  Transmission Date: 20061013
  Serious: Yes (Other)
  Sender: FDA-Public Use
  Company Number: PHEH2006US02997

PATIENT
  Age: 7 Year
  Sex: Male
  Weight: 19 kg

DRUGS (1)
  1. FOCALIN XR [Suspect]
     Dosage: 5 MG, ORAL
     Route: 048

REACTIONS (2)
  - DEPRESSED MOOD [None]
  - TEARFULNESS [None]
